FAERS Safety Report 11864524 (Version 2)
Quarter: 2016Q1

REPORT INFORMATION
  Report Type: Spontaneous
  Country: US (occurrence: US)
  Receive Date: 20151223
  Receipt Date: 20160120
  Transmission Date: 20160526
  Serious: No
  Sender: FDA-Public Use
  Company Number: US-EISAI MEDICAL RESEARCH-EC-2015-012867

PATIENT
  Age: 26 Year
  Sex: Female

DRUGS (1)
  1. BANZEL [Suspect]
     Active Substance: RUFINAMIDE
     Indication: PRODUCT USED FOR UNKNOWN INDICATION
     Dosage: UNKNOWN
     Route: 048
     Dates: start: 20151216, end: 20151216

REACTIONS (3)
  - Eye irritation [Recovering/Resolving]
  - Exposure during pregnancy [Recovering/Resolving]
  - Accidental exposure to product [Recovering/Resolving]

NARRATIVE: CASE EVENT DATE: 2015
